FAERS Safety Report 8305433 (Version 2)
Quarter: 2013Q3

REPORT INFORMATION
  Report Type: Spontaneous
  Country: US (occurrence: US)
  Receive Date: 20111221
  Receipt Date: 20130809
  Transmission Date: 20140515
  Serious: Yes (Other)
  Sender: FDA-Public Use
  Company Number: US-ROCHE-803136

PATIENT
  Age: 17 Year
  Sex: Male
  Weight: 63.56 kg

DRUGS (1)
  1. ACCUTANE [Suspect]
     Indication: ACNE CYSTIC
     Dosage: 20MG TO 40 MG
     Route: 048
     Dates: start: 20000906, end: 20010228

REACTIONS (11)
  - Crohn^s disease [Unknown]
  - Colitis ulcerative [Unknown]
  - Anal fissure [Unknown]
  - Anal abscess [Unknown]
  - Depression [Unknown]
  - Suicide attempt [Unknown]
  - Intestinal obstruction [Unknown]
  - Headache [Unknown]
  - Dry skin [Unknown]
  - Chapped lips [Unknown]
  - Back pain [Unknown]
